FAERS Safety Report 18267241 (Version 1)
Quarter: 2020Q3

REPORT INFORMATION
  Report Type: Spontaneous
  Country: US (occurrence: US)
  Receive Date: 20200915
  Receipt Date: 20200915
  Transmission Date: 20201103
  Serious: Yes (Other)
  Sender: FDA-Public Use
  Company Number: None

PATIENT
  Age: 71 Year
  Sex: Female
  Weight: 44.9 kg

DRUGS (21)
  1. HALOPERIDOL. [Concomitant]
     Active Substance: HALOPERIDOL
     Dates: start: 20200815, end: 20200815
  2. ALBUMIN [Concomitant]
     Active Substance: ALBUMIN HUMAN
     Dates: start: 20200817, end: 20200817
  3. AMIODARONE [Concomitant]
     Active Substance: AMIODARONE
     Dates: start: 20200815, end: 20200827
  4. MAGNESIUM SULFATE. [Concomitant]
     Active Substance: MAGNESIUM SULFATE
     Dates: start: 20200816, end: 20200816
  5. MVI [Concomitant]
     Active Substance: VITAMINS
     Dates: start: 20200815, end: 20200827
  6. VANCOMYCIN [Concomitant]
     Active Substance: VANCOMYCIN
     Dates: start: 20200815, end: 20200817
  7. INSULIN LISPRO [Concomitant]
     Active Substance: INSULIN LISPRO
     Dates: start: 20200815, end: 20200827
  8. PIPERACILLIN/TAZOBACTAM [Concomitant]
     Active Substance: PIPERACILLIN SODIUM\TAZOBACTAM SODIUM
     Dates: start: 20200815, end: 20200825
  9. POTASSIUM CHLORIDE. [Concomitant]
     Active Substance: POTASSIUM CHLORIDE
     Dates: start: 20200815, end: 20200823
  10. POTASSIUM PHOSPHATE [Concomitant]
     Active Substance: POTASSIUM PHOSPHATE
     Dates: start: 20200816, end: 20200818
  11. REMDESIVIR. [Suspect]
     Active Substance: REMDESIVIR
     Indication: COVID-19
     Route: 042
     Dates: start: 20200815, end: 20200819
  12. DEXAMETHASONE. [Concomitant]
     Active Substance: DEXAMETHASONE
     Dates: start: 20200816, end: 20200825
  13. FUROSEMIDE. [Concomitant]
     Active Substance: FUROSEMIDE
     Dates: start: 20200818, end: 20200818
  14. MIDODRINE [Concomitant]
     Active Substance: MIDODRINE
     Dates: start: 20200817, end: 20200827
  15. REMDESIVIR. [Concomitant]
     Active Substance: REMDESIVIR
     Dates: start: 20200815, end: 20200821
  16. FLUDRICORTISONE [Concomitant]
     Dates: start: 20200818, end: 20200822
  17. IOPAMIDOL 76% [Concomitant]
     Dates: start: 20200814, end: 20200814
  18. BIOK PLUS [Concomitant]
     Dates: start: 20200818, end: 20200827
  19. ENOXAPARIN [Concomitant]
     Active Substance: ENOXAPARIN
     Dates: start: 20200815, end: 20200827
  20. INSULIN GLARGINE [Concomitant]
     Active Substance: INSULIN GLARGINE
     Dates: start: 20200815, end: 20200827
  21. METOCLOPRAMIDE. [Concomitant]
     Active Substance: METOCLOPRAMIDE
     Dates: start: 20200817, end: 20200827

REACTIONS (3)
  - Alanine aminotransferase increased [None]
  - Aspartate aminotransferase increased [None]
  - Therapy interrupted [None]

NARRATIVE: CASE EVENT DATE: 20200819
